FAERS Safety Report 8404476-4 (Version None)
Quarter: 2012Q2

REPORT INFORMATION
  Report Type: 
  Country: None (occurrence: None)
  Receive Date: 20120601
  Receipt Date: 20111117
  Transmission Date: 20120825
  Serious: No
  Sender: FDA-Public Use
  Company Number: US-NOVEN-11US003657

PATIENT
  Sex: Male
  Weight: 89.796 kg

DRUGS (3)
  1. DAYTRANA [Suspect]
     Indication: ATTENTION DEFICIT/HYPERACTIVITY DISORDER
     Dosage: 30 MG, WEEKDAYS
     Route: 062
     Dates: start: 20111001
  2. DAYTRANA [Suspect]
     Dosage: 30 MG, WEEKDAYS
     Route: 062
     Dates: start: 20110501, end: 20110501
  3. DAYTRANA [Suspect]
     Dosage: 15 MG, WEEKDAYS
     Route: 062
     Dates: start: 20110501, end: 20111001

REACTIONS (3)
  - DRUG INEFFECTIVE [None]
  - PRODUCT QUALITY ISSUE [None]
  - DRUG ADMINISTRATION ERROR [None]
